FAERS Safety Report 13576267 (Version 1)
Quarter: 2017Q2

REPORT INFORMATION
  Report Type: Spontaneous
  Country: FR (occurrence: FR)
  Receive Date: 20170524
  Receipt Date: 20170524
  Transmission Date: 20170830
  Serious: Yes (Hospitalization)
  Sender: FDA-Public Use
  Company Number: FR-AUROBINDO-AUR-APL-2017-34373

PATIENT
  Age: 45 Year
  Sex: Male

DRUGS (1)
  1. LEVOFLOXACIN ARROW 5 MG/ML SOLUTION FOR INFUSION [Suspect]
     Active Substance: LEVOFLOXACIN
     Indication: LUNG DISORDER
     Dosage: 500 MG, TWO TIMES A DAY
     Route: 041
     Dates: start: 20170418

REACTIONS (3)
  - Hallucinations, mixed [Recovered/Resolved]
  - Delirium [Recovered/Resolved]
  - Confusional state [Recovered/Resolved]

NARRATIVE: CASE EVENT DATE: 20170420
